FAERS Safety Report 12654641 (Version 1)
Quarter: 2016Q3

REPORT INFORMATION
  Report Type: Spontaneous
  Country: US (occurrence: None)
  Receive Date: 20160815
  Receipt Date: 20160815
  Transmission Date: 20161109
  Serious: No
  Sender: FDA-Public Use
  Company Number: None

PATIENT
  Age: 58 Year
  Sex: Male
  Weight: 77.11 kg

DRUGS (3)
  1. JUBLIA [Concomitant]
     Active Substance: EFINACONAZOLE
  2. LISTERINE WHITENING [Suspect]
     Active Substance: ALCOHOL\HYDROGEN PEROXIDE\POLOXAMER 407
     Indication: DENTAL DISORDER PROPHYLAXIS
     Route: 048
     Dates: start: 20160715, end: 20160808
  3. IBUPROFEN. [Concomitant]
     Active Substance: IBUPROFEN

REACTIONS (2)
  - Tongue discolouration [None]
  - Oral mucosal eruption [None]

NARRATIVE: CASE EVENT DATE: 20160719
